FAERS Safety Report 5783156-8 (Version None)
Quarter: 2008Q2

REPORT INFORMATION
  Report Type: 
  Country: None (occurrence: None)
  Receive Date: 20080619
  Receipt Date: 20080619
  Transmission Date: 20081010
  Serious: Yes (Life-Threatening)
  Sender: FDA-Public Use
  Company Number: None

PATIENT
  Age: 5 Year
  Sex: Male
  Weight: 16 kg

DRUGS (1)
  1. FERRLECIT [Suspect]
     Indication: IRON DEFICIENCY ANAEMIA
     Dosage: 120 MG
     Dates: start: 20080611, end: 20080611

REACTIONS (4)
  - ABDOMINAL PAIN [None]
  - ANAPHYLACTIC REACTION [None]
  - TACHYCARDIA [None]
  - VOMITING [None]
